FAERS Safety Report 9475516 (Version 1)
Quarter: 2013Q3

REPORT INFORMATION
  Report Type: Spontaneous
  Country: US (occurrence: None)
  Receive Date: 20130822
  Receipt Date: 20130822
  Transmission Date: 20140515
  Serious: Yes (Hospitalization)
  Sender: FDA-Public Use
  Company Number: None

PATIENT
  Age: 38 Year
  Sex: Male
  Weight: 85.8 kg

DRUGS (1)
  1. OXYCODONE [Suspect]
     Indication: PAIN
     Route: 048
     Dates: start: 20130207

REACTIONS (2)
  - Narcotic bowel syndrome [None]
  - Withdrawal syndrome [None]
